FAERS Safety Report 4628603-X (Version None)
Quarter: 2005Q2

REPORT INFORMATION
  Report Type: 
  Country: None (occurrence: None)
  Receive Date: 20050406
  Receipt Date: 20040708
  Transmission Date: 20051028
  Serious: Yes (Death, Hospitalization, Disabling, Other)
  Sender: FDA-Public Use
  Company Number: JP-MERCK-0407USA00803

PATIENT
  Age: 78 Year
  Sex: Male
  Weight: 31 kg

DRUGS (12)
  1. FOSAMAX [Suspect]
     Indication: OSTEOPOROSIS
     Route: 048
     Dates: start: 20020515, end: 20040704
  2. FOSAMAX [Suspect]
     Indication: PROPHYLAXIS
     Route: 048
     Dates: start: 20020515, end: 20040704
  3. ACTOS [Concomitant]
     Indication: DIABETES MELLITUS
     Route: 048
     Dates: start: 20011001
  4. EUGLUCON [Concomitant]
     Indication: DIABETES MELLITUS
     Route: 048
     Dates: start: 20011016
  5. MUCOSOLVAN [Concomitant]
     Indication: PRODUCTIVE COUGH
     Route: 048
     Dates: start: 20011001
  6. MEVALOTIN [Concomitant]
     Indication: HYPERLIPIDAEMIA
     Route: 048
     Dates: start: 20020417
  7. ETODOLAC [Concomitant]
     Indication: BACK PAIN
     Route: 048
     Dates: start: 20020417
  8. TAGAMET [Concomitant]
     Indication: GASTRITIS
     Route: 048
     Dates: start: 20020601
  9. CRAVIT [Concomitant]
     Indication: CATARACT
     Route: 047
     Dates: start: 20020222, end: 20020501
  10. CRAVIT [Concomitant]
     Route: 047
     Dates: start: 20020224, end: 20020501
  11. DICLOD [Concomitant]
     Indication: CATARACT
     Route: 047
     Dates: start: 20020225, end: 20020501
  12. DICLOD [Concomitant]
     Route: 047
     Dates: start: 20020227, end: 20020501

REACTIONS (4)
  - BLINDNESS UNILATERAL [None]
  - LUNG NEOPLASM MALIGNANT [None]
  - OPTIC NEUROPATHY [None]
  - VISUAL ACUITY REDUCED [None]
